FAERS Safety Report 5159613-4 (Version None)
Quarter: 2006Q4

REPORT INFORMATION
  Report Type: 
  Country: None (occurrence: None)
  Receive Date: 20061129
  Receipt Date: 20061018
  Transmission Date: 20070319
  Serious: Yes (Hospitalization)
  Sender: FDA-Public Use
  Company Number: PHBS2006JP16367

PATIENT
  Age: 31 Year
  Sex: Female

DRUGS (6)
  1. GLUCOCORTICOIDS [Concomitant]
  2. DECADRON [Concomitant]
     Dosage: 0.5 MG/DAY
     Route: 048
  3. CORTRIL [Concomitant]
     Dosage: 10 MG/DAY
     Route: 048
  4. FLORINEF [Concomitant]
     Dosage: 0.2 MG/DAY
     Route: 048
  5. METLIGINE [Concomitant]
     Dosage: 0.2 MG/DAY
     Route: 048
  6. TEGRETOL [Suspect]
     Indication: TRIGEMINAL NEURALGIA
     Dosage: 800 MG/DAY
     Route: 048
     Dates: start: 20030101, end: 20060612

REACTIONS (4)
  - 17-HYDROXYPROGESTERONE INCREASED [None]
  - BLOOD CORTICOTROPHIN INCREASED [None]
  - LYMPHADENOPATHY [None]
  - RENIN DECREASED [None]
